FAERS Safety Report 10365969 (Version 1)
Quarter: 2014Q3

REPORT INFORMATION
  Report Type: Spontaneous
  Country: GB (occurrence: None)
  Receive Date: 20140804
  Receipt Date: 20140804
  Transmission Date: 20150326
  Serious: Yes (Other)
  Sender: FDA-Public Use
  Company Number: AUR-APL-2014-08321

PATIENT

DRUGS (1)
  1. METFORMIN [Suspect]
     Active Substance: METFORMIN HYDROCHLORIDE
     Indication: GESTATIONAL DIABETES
     Dosage: 500 MG TWICE DAILY FROM 21 WEEKS GESTATIONAL DIABETES, TRANSPLACENTAL
     Route: 064

REACTIONS (5)
  - Polyhydramnios [None]
  - Foetal macrosomia [None]
  - Foetal exposure during pregnancy [None]
  - Ketoacidosis [None]
  - Caesarean section [None]
